FAERS Safety Report 20248086 (Version 1)
Quarter: 2021Q4

REPORT INFORMATION
  Report Type: Spontaneous
  Country: US (occurrence: US)
  Receive Date: 20211229
  Receipt Date: 20211229
  Transmission Date: 20220304
  Serious: Yes (Other)
  Sender: FDA-Public Use
  Company Number: US-ANIPHARMA-2021-US-027295

PATIENT
  Age: 82 Year
  Sex: Female

DRUGS (5)
  1. ARIMIDEX [Suspect]
     Active Substance: ANASTROZOLE
     Indication: Product used for unknown indication
     Route: 065
  2. FASLODEX [Suspect]
     Active Substance: FULVESTRANT
     Route: 065
  3. TRASTUZUMAB [Suspect]
     Active Substance: TRASTUZUMAB
     Route: 065
     Dates: start: 20200507, end: 20200618
  4. CAPECITABINE [Concomitant]
     Active Substance: CAPECITABINE
     Dosage: 1000MG BID
     Route: 065
     Dates: start: 202110
  5. TUCATINIB [Concomitant]
     Active Substance: TUCATINIB
     Dosage: 300MG BID
     Route: 065
     Dates: start: 202110

REACTIONS (2)
  - Ventricular hypokinesia [Unknown]
  - Gastrointestinal disorder [Unknown]

NARRATIVE: CASE EVENT DATE: 20200413
